FAERS Safety Report 6279956-0 (Version None)
Quarter: 2009Q3

REPORT INFORMATION
  Report Type: 
  Country: None (occurrence: None)
  Receive Date: 20090723
  Receipt Date: 20090406
  Transmission Date: 20100115
  Serious: No
  Sender: FDA-Public Use
  Company Number: US-AMGEN-KDL341832

PATIENT
  Sex: Male
  Weight: 81.7 kg

DRUGS (3)
  1. PROCRIT [Suspect]
     Indication: ANAEMIA OF MALIGNANT DISEASE
     Dates: start: 20061201
  2. REVLIMID [Concomitant]
  3. DECADRON [Concomitant]

REACTIONS (1)
  - ANAEMIA [None]
